FAERS Safety Report 22626591 (Version 4)
Quarter: 2023Q4

REPORT INFORMATION
  Report Type: Report from Study
  Country: US (occurrence: US)
  Receive Date: 20230621
  Receipt Date: 20231116
  Transmission Date: 20240110
  Serious: No
  Sender: FDA-Public Use
  Company Number: US-SA-SAC20230620000968

PATIENT
  Age: 60 Year
  Sex: Male

DRUGS (2)
  1. JEVTANA [Suspect]
     Active Substance: CABAZITAXEL
     Indication: Prostate cancer
     Dosage: 50 MG/ML, Q3W
     Route: 043
     Dates: start: 20230420
  2. JEVTANA [Suspect]
     Active Substance: CABAZITAXEL
     Dosage: 50 MG/ML, Q4W
     Route: 041

REACTIONS (2)
  - Weight increased [Unknown]
  - Weight decreased [Recovered/Resolved]

NARRATIVE: CASE EVENT DATE: 20230619
